FAERS Safety Report 9354251 (Version 1)
Quarter: 2013Q2

REPORT INFORMATION
  Report Type: Spontaneous
  Country: GR (occurrence: None)
  Receive Date: 20130613
  Receipt Date: 20130613
  Transmission Date: 20140414
  Serious: Yes (Other)
  Sender: FDA-Public Use
  Company Number: AUR-APL-2013-04826

PATIENT
  Age: 33 Year
  Sex: Female

DRUGS (1)
  1. LAMOTRIGINE (LAMOTRIGINE) [Suspect]
     Indication: JUVENILE MYOCLONIC EPILEPSY

REACTIONS (4)
  - Pityriasis rosea [None]
  - Rash [None]
  - Lymphadenopathy [None]
  - Skin exfoliation [None]
